FAERS Safety Report 5794975-6 (Version None)
Quarter: 2008Q2

REPORT INFORMATION
  Report Type: 
  Country: None (occurrence: None)
  Receive Date: 20080626
  Receipt Date: 20080519
  Transmission Date: 20081010
  Serious: Yes (Hospitalization)
  Sender: FDA-Public Use
  Company Number: 2008SP012212

PATIENT
  Age: 80 Year
  Sex: Female

DRUGS (8)
  1. DIAFUSOR (GLYCERYL TRINITRATE) (GLYCERYL TRINITRATE) [Suspect]
     Indication: ANGINA PECTORIS
     Dosage: 10 MG; QD; CUT
     Route: 003
     Dates: start: 20080124, end: 20080410
  2. TENORMIN [Suspect]
     Indication: HYPERTENSION
     Dosage: 50  MG; QD; PO; QD; PO
     Route: 048
     Dates: end: 20080410
  3. TENORMIN [Suspect]
     Indication: HYPERTENSION
     Dosage: 50  MG; QD; PO; QD; PO
     Route: 048
     Dates: start: 20080411, end: 20080414
  4. LASIX [Suspect]
     Indication: HYPERTENSION
     Dosage: 50 MG; QD; PO
     Route: 048
     Dates: end: 20080414
  5. OMEPRAZOLE [Concomitant]
  6. TAHOR [Concomitant]
  7. PREVISCAN [Concomitant]
  8. ZOLPIDEM TARTRATE [Concomitant]

REACTIONS (9)
  - BRADYCARDIA [None]
  - CARDIO-RESPIRATORY ARREST [None]
  - CREATININE RENAL CLEARANCE DECREASED [None]
  - DILATATION ATRIAL [None]
  - DYSPNOEA EXERTIONAL [None]
  - MALAISE [None]
  - MITRAL VALVE INCOMPETENCE [None]
  - ORTHOSTATIC HYPOTENSION [None]
  - SYNCOPE [None]
